FAERS Safety Report 7536732-6 (Version None)
Quarter: 2011Q2

REPORT INFORMATION
  Report Type: 
  Country: None (occurrence: None)
  Receive Date: 20110609
  Receipt Date: 20110531
  Transmission Date: 20111010
  Serious: Yes (Other)
  Sender: FDA-Public Use
  Company Number: B0724747A

PATIENT
  Age: 66 Year
  Sex: Male

DRUGS (1)
  1. DUODART [Suspect]
     Dosage: .5MG PER DAY
     Route: 048
     Dates: start: 20100101

REACTIONS (3)
  - DERMATITIS BULLOUS [None]
  - RASH PAPULAR [None]
  - ERYTHEMA [None]
